FAERS Safety Report 5646673-7 (Version None)
Quarter: 2008Q1

REPORT INFORMATION
  Report Type: 
  Country: None (occurrence: None)
  Receive Date: 20080303
  Receipt Date: 20080227
  Transmission Date: 20080703
  Serious: Yes (Disabling, Other)
  Sender: FDA-Public Use
  Company Number: PHHY2008BR02246

PATIENT
  Age: 38 Year
  Sex: Female

DRUGS (1)
  1. FORASEQ [Suspect]
     Dosage: 12/400 MCG

REACTIONS (6)
  - DIZZINESS [None]
  - DRUG EXPOSURE DURING PREGNANCY [None]
  - DRY MOUTH [None]
  - HEART RATE INCREASED [None]
  - TREMOR [None]
  - VISION BLURRED [None]
